FAERS Safety Report 8296153-8 (Version None)
Quarter: 2012Q2

REPORT INFORMATION
  Report Type: 
  Country: None (occurrence: None)
  Receive Date: 20120418
  Receipt Date: 20120412
  Transmission Date: 20120825
  Serious: Yes (Other)
  Sender: FDA-Public Use
  Company Number: JP-GLAXOSMITHKLINE-B0795812A

PATIENT
  Sex: Female

DRUGS (1)
  1. ALLERMIST [Suspect]
     Indication: RHINITIS ALLERGIC
     Dosage: 110MCG PER DAY
     Route: 045
     Dates: start: 20120411

REACTIONS (3)
  - VISUAL FIELD DEFECT [None]
  - VISUAL IMPAIRMENT [None]
  - VISION BLURRED [None]
